FAERS Safety Report 11685022 (Version 2)
Quarter: 2016Q2

REPORT INFORMATION
  Report Type: Spontaneous
  Country: US (occurrence: US)
  Receive Date: 20151030
  Receipt Date: 20160609
  Transmission Date: 20160815
  Serious: Yes (Hospitalization)
  Sender: FDA-Public Use
  Company Number: US-ASTRAZENECA-2015SF01915

PATIENT
  Sex: Female

DRUGS (2)
  1. TUDORZA PRESSAIR [Suspect]
     Active Substance: ACLIDINIUM BROMIDE
     Indication: BRONCHITIS CHRONIC
     Dosage: 400 MCG, ONE PUFF TWO TIMES DAILY
     Route: 055
     Dates: start: 201510
  2. SYMBICORT [Suspect]
     Active Substance: BUDESONIDE\FORMOTEROL FUMARATE DIHYDRATE
     Indication: BRONCHITIS CHRONIC
     Dosage: 160/4.5 MCG TWO PUFFS TWO TIMES DAILY
     Route: 055
     Dates: start: 2012

REACTIONS (8)
  - Sleep disorder due to general medical condition, insomnia type [Unknown]
  - Foreign body [Recovered/Resolved]
  - Pneumonia [Unknown]
  - Sleep apnoea syndrome [Unknown]
  - Dyspnoea [Unknown]
  - Product quality issue [Unknown]
  - Obesity [Unknown]
  - Drug dose omission [Unknown]
